FAERS Safety Report 18206400 (Version 1)
Quarter: 2020Q3

REPORT INFORMATION
  Report Type: Spontaneous
  Country: GB (occurrence: GB)
  Receive Date: 20200828
  Receipt Date: 20200828
  Transmission Date: 20201103
  Serious: Yes (Hospitalization, Other)
  Sender: FDA-Public Use
  Company Number: GB-LUPIN PHARMACEUTICALS INC.-2020-05161

PATIENT
  Sex: Male
  Weight: 1.49 kg

DRUGS (16)
  1. ROCURONIUM BROMIDE. [Suspect]
     Active Substance: ROCURONIUM BROMIDE
     Indication: MUSCLE RELAXANT THERAPY
     Dosage: 0.8 MILLIGRAM/KILOGRAM, UNK
     Route: 064
  2. FENTANYL. [Suspect]
     Active Substance: FENTANYL
     Indication: INDUCTION OF ANAESTHESIA
     Dosage: 3 MILLIGRAM/KILOGRAM, UNK
     Route: 064
  3. PHENYLEPHRINE [Suspect]
     Active Substance: PHENYLEPHRINE HYDROCHLORIDE
     Indication: BLOOD PRESSURE MANAGEMENT
     Dosage: UNK
     Route: 064
  4. PROPOFOL. [Suspect]
     Active Substance: PROPOFOL
     Indication: INDUCTION OF ANAESTHESIA
     Dosage: 1.5 MILLIGRAM/KILOGRAM (INITIAL PARENT ROUTE NOT STATED)
     Route: 064
  5. PROPOFOL. [Suspect]
     Active Substance: PROPOFOL
     Indication: MAINTENANCE OF ANAESTHESIA
     Dosage: UNK (2?3 MG/KG)
     Route: 064
  6. METOCLOPRAMIDE. [Suspect]
     Active Substance: METOCLOPRAMIDE
     Indication: PRODUCT USED FOR UNKNOWN INDICATION
     Dosage: 10 MILLIGRAM, UNK
     Route: 064
  7. REMIFENTANIL [Suspect]
     Active Substance: REMIFENTANIL
     Indication: MAINTENANCE OF ANAESTHESIA
     Dosage: 10 MILLIGRAM/KILOGRAM EVERY 1 HOUR
     Route: 064
  8. MORPHINE [Suspect]
     Active Substance: MORPHINE
     Indication: PAIN MANAGEMENT
     Dosage: 0.15 MILLIGRAM/KILOGRAM, UNK
     Route: 064
  9. CEFUROXIME AXETIL. [Suspect]
     Active Substance: CEFUROXIME AXETIL
     Indication: ANTIBIOTIC PROPHYLAXIS
     Dosage: 1.5 GRAM (THREE FURTHER DOSES)
     Route: 064
  10. INDOMETHACIN [INDOMETACIN] [Suspect]
     Active Substance: INDOMETHACIN
     Indication: TOCOLYSIS
     Dosage: 100 MILLIGRAM, UNK
     Route: 064
  11. PARACETAMOL [Suspect]
     Active Substance: ACETAMINOPHEN
     Indication: PAIN MANAGEMENT
     Dosage: 1 GRAM, UNK
     Route: 064
  12. MORPHINE [Suspect]
     Active Substance: MORPHINE
     Indication: TUBAL INSUFFLATION
     Dosage: UNK
     Route: 064
  13. SEVOFLURANE. [Suspect]
     Active Substance: SEVOFLURANE
     Indication: MAINTENANCE OF ANAESTHESIA
     Dosage: UNK (AT A MINIMUM ALVEOLAR CONCENTRATION (MAC) OF 0.4?1)
     Route: 064
  14. HARTMANN^S SOLUTION [Suspect]
     Active Substance: CALCIUM CHLORIDE\POTASSIUM CHLORIDE\SODIUM CHLORIDE\SODIUM LACTATE
     Indication: UTERINE IRRIGATION
     Dosage: 500 MILLILITER, UNK
     Route: 064
  15. PROGESTERONE. [Suspect]
     Active Substance: PROGESTERONE
     Indication: TOCOLYSIS
     Dosage: 200 MILLIGRAM, QD
     Route: 064
  16. HARTMANN^S SOLUTION [Suspect]
     Active Substance: CALCIUM CHLORIDE\POTASSIUM CHLORIDE\SODIUM CHLORIDE\SODIUM LACTATE
     Dosage: 1 LITER, UNK
     Route: 064

REACTIONS (4)
  - Pulmonary haemorrhage [Recovered/Resolved]
  - Acute kidney injury [Recovered/Resolved]
  - Foetal exposure during pregnancy [Unknown]
  - Premature baby [Unknown]
